FAERS Safety Report 18490577 (Version 1)
Quarter: 2020Q4

REPORT INFORMATION
  Report Type: Spontaneous
  Country: JP (occurrence: JP)
  Receive Date: 20201111
  Receipt Date: 20201111
  Transmission Date: 20210114
  Serious: Yes (Hospitalization, Other)
  Sender: FDA-Public Use
  Company Number: JP-PFIZER INC-2020431726

PATIENT
  Age: 26 Year
  Sex: Male

DRUGS (6)
  1. LYRICA [Suspect]
     Active Substance: PREGABALIN
     Indication: LIGAMENT SPRAIN
     Dosage: 150 MG, DAILY
     Route: 048
  2. LYRICA [Suspect]
     Active Substance: PREGABALIN
     Indication: POST-TRAUMATIC NECK SYNDROME
  3. EPERISONE [Suspect]
     Active Substance: EPERISONE
     Indication: LIGAMENT SPRAIN
     Dosage: UNK
     Route: 048
  4. EPERISONE [Suspect]
     Active Substance: EPERISONE
     Indication: POST-TRAUMATIC NECK SYNDROME
  5. CELECOX [Suspect]
     Active Substance: CELECOXIB
     Indication: LIGAMENT SPRAIN
  6. CELECOX [Suspect]
     Active Substance: CELECOXIB
     Indication: POST-TRAUMATIC NECK SYNDROME
     Dosage: 200 MG, DAILY
     Route: 048

REACTIONS (2)
  - Myoglobinuria [Not Recovered/Not Resolved]
  - Rhabdomyolysis [Not Recovered/Not Resolved]
